FAERS Safety Report 23456912 (Version 1)
Quarter: 2024Q1

REPORT INFORMATION
  Report Type: Spontaneous
  Country: US (occurrence: US)
  Receive Date: 20240130
  Receipt Date: 20240130
  Transmission Date: 20240410
  Serious: Yes (Other)
  Sender: FDA-Public Use
  Company Number: US-SA-SAC20240123000772

PATIENT
  Sex: Male

DRUGS (1)
  1. AUBAGIO [Suspect]
     Active Substance: TERIFLUNOMIDE
     Indication: Multiple sclerosis
     Dosage: UNK

REACTIONS (13)
  - Blindness [Unknown]
  - Muscle spasms [Not Recovered/Not Resolved]
  - Tremor [Not Recovered/Not Resolved]
  - Visual field defect [Not Recovered/Not Resolved]
  - Gait disturbance [Not Recovered/Not Resolved]
  - Constipation [Not Recovered/Not Resolved]
  - Liver disorder [Unknown]
  - Renal disorder [Unknown]
  - Reading disorder [Unknown]
  - Balance disorder [Unknown]
  - Pain in extremity [Not Recovered/Not Resolved]
  - Hypoaesthesia [Not Recovered/Not Resolved]
  - Paraesthesia [Not Recovered/Not Resolved]
